FAERS Safety Report 15880334 (Version 1)
Quarter: 2019Q1

REPORT INFORMATION
  Report Type: Spontaneous
  Country: US (occurrence: US)
  Receive Date: 20190128
  Receipt Date: 20190128
  Transmission Date: 20190417
  Serious: Yes (Hospitalization)
  Sender: FDA-Public Use
  Company Number: None

PATIENT
  Age: 56 Year
  Sex: Male
  Weight: 71.1 kg

DRUGS (8)
  1. HYZAAR 100/12.5MG [Concomitant]
  2. AZITHROMYCIN ANHYDROUS. [Suspect]
     Active Substance: AZITHROMYCIN ANHYDROUS
     Indication: BRONCHITIS
     Route: 048
     Dates: start: 20190107, end: 20190112
  3. TAMSULOSIN 0.4MG [Concomitant]
     Active Substance: TAMSULOSIN
  4. SPIRONOLACTONE 50MG [Concomitant]
     Active Substance: SPIRONOLACTONE
  5. ASPIRIN 325MG [Concomitant]
     Active Substance: ASPIRIN
  6. CARVEDILOL 25MG [Concomitant]
     Active Substance: CARVEDILOL
  7. ATORVASTATIN 40MG [Concomitant]
     Active Substance: ATORVASTATIN
  8. TRAMADOL 50MG [Concomitant]
     Active Substance: TRAMADOL

REACTIONS (7)
  - Hepatitis acute [None]
  - Nausea [None]
  - Hepatocellular injury [None]
  - Cholelithiasis [None]
  - Hepatic steatosis [None]
  - Vomiting [None]
  - Asthenia [None]

NARRATIVE: CASE EVENT DATE: 20190110
